FAERS Safety Report 8575991-8 (Version None)
Quarter: 2012Q3

REPORT INFORMATION
  Report Type: 
  Country: None (occurrence: None)
  Receive Date: 20120724
  Receipt Date: 20120711
  Transmission Date: 20120928
  Serious: Yes (Other)
  Sender: FDA-Public Use
  Company Number: 2012P1049969

PATIENT
  Age: 3 Year

DRUGS (2)
  1. VALPROATE SODIUM [Concomitant]
  2. LEVETIRACETAM [Suspect]
     Indication: MYOCLONIC EPILEPSY
     Dosage: 18 MG/KG, QD

REACTIONS (1)
  - PETIT MAL EPILEPSY [None]
